FAERS Safety Report 12011020 (Version 2)
Quarter: 2016Q1

REPORT INFORMATION
  Report Type: Spontaneous
  Country: US (occurrence: US)
  Receive Date: 20160205
  Receipt Date: 20160307
  Transmission Date: 20160526
  Serious: Yes (Disabling, Other)
  Sender: FDA-Public Use
  Company Number: US-SA-2016SA019527

PATIENT
  Age: 55 Year
  Sex: Male

DRUGS (5)
  1. KEFLEX [Concomitant]
     Active Substance: CEPHALEXIN
     Route: 065
  2. IBUPROFEN. [Concomitant]
     Active Substance: IBUPROFEN
     Route: 065
  3. ZOLPIDEM TARTRATE. [Suspect]
     Active Substance: ZOLPIDEM TARTRATE
     Indication: SLEEP DISORDER
     Route: 048
  4. FLEXERIL [Concomitant]
     Active Substance: CYCLOBENZAPRINE HYDROCHLORIDE
     Route: 065
  5. ACYCLOVIR. [Concomitant]
     Active Substance: ACYCLOVIR
     Route: 065

REACTIONS (3)
  - Impaired work ability [Unknown]
  - Shoulder operation [Unknown]
  - Surgery [Unknown]

NARRATIVE: CASE EVENT DATE: 20150610
